FAERS Safety Report 8961125 (Version 2)
Quarter: 2013Q1

REPORT INFORMATION
  Report Type: Spontaneous
  Country: US (occurrence: US)
  Receive Date: 20121212
  Receipt Date: 20130103
  Transmission Date: 20140127
  Serious: Yes (Death)
  Sender: FDA-Public Use
  Company Number: US-GLAXOSMITHKLINE-A1003914A

PATIENT
  Age: 55 Year
  Sex: Male

DRUGS (4)
  1. AVODART [Suspect]
     Indication: PRODUCT USED FOR UNKNOWN INDICATION
     Route: 048
     Dates: start: 201102, end: 201211
  2. CARDURA [Concomitant]
  3. LIPITOR [Concomitant]
  4. VIAGRA [Concomitant]

REACTIONS (1)
  - Completed suicide [Fatal]
